FAERS Safety Report 15460311 (Version 2)
Quarter: 2018Q4

REPORT INFORMATION
  Report Type: Report from Study
  Country: CA (occurrence: CA)
  Receive Date: 20181003
  Receipt Date: 20181016
  Transmission Date: 20190204
  Serious: No
  Sender: FDA-Public Use
  Company Number: CA-JNJFOC-20180928686

PATIENT
  Sex: Female
  Weight: 59 kg

DRUGS (1)
  1. STELARA [Suspect]
     Active Substance: USTEKINUMAB
     Indication: HIDRADENITIS
     Route: 058

REACTIONS (5)
  - Decubitus ulcer [Unknown]
  - Off label use [Unknown]
  - Skin lesion [Unknown]
  - Secretion discharge [Unknown]
  - Product use in unapproved indication [Unknown]
